FAERS Safety Report 5376544-5 (Version None)
Quarter: 2007Q2

REPORT INFORMATION
  Report Type: 
  Country: None (occurrence: None)
  Receive Date: 20070629
  Receipt Date: 20070617
  Transmission Date: 20071010
  Serious: Yes (Death, Hospitalization)
  Sender: FDA-Public Use
  Company Number: POMP-11099

PATIENT
  Age: 26 Week
  Sex: Male
  Weight: 5 kg

DRUGS (3)
  1. MYOZYME [Suspect]
     Indication: GLYCOGEN STORAGE DISEASE TYPE II
     Dosage: 20 MG/KG Q2WKS IV
     Route: 042
     Dates: start: 20070517, end: 20070531
  2. PROPRANOLOL [Concomitant]
  3. CAPTOPRIL [Concomitant]

REACTIONS (5)
  - CARDIOPULMONARY FAILURE [None]
  - COUGH [None]
  - GENERAL PHYSICAL HEALTH DETERIORATION [None]
  - HYPERTROPHIC CARDIOMYOPATHY [None]
  - PYREXIA [None]
